FAERS Safety Report 9015439 (Version 1)
Quarter: 2013Q1

REPORT INFORMATION
  Report Type: Spontaneous
  Country: JP (occurrence: JP)
  Receive Date: 20130116
  Receipt Date: 20130116
  Transmission Date: 20140127
  Serious: Yes (Hospitalization)
  Sender: FDA-Public Use
  Company Number: JP-ASTELLAS-2012JP011919

PATIENT
  Age: 74 Year
  Sex: Male
  Weight: 72.5 kg

DRUGS (4)
  1. FUNGUARD [Suspect]
     Indication: CANDIDA INFECTION
     Dosage: 150 MG, UID/QD
     Route: 041
     Dates: start: 20121207, end: 20121216
  2. MEROPEN [Suspect]
     Indication: WHITE BLOOD CELL COUNT INCREASED
     Dosage: 0.5 G, QID
     Route: 041
     Dates: start: 20121129, end: 20121201
  3. MEROPEN [Suspect]
     Indication: PYREXIA
     Dosage: 0.5 G, QID
     Route: 041
     Dates: start: 20121207, end: 20121210
  4. TARGOCID [Suspect]
     Indication: STAPHYLOCOCCAL INFECTION
     Dosage: 0.6 G, BID
     Route: 041
     Dates: start: 20121210, end: 20121214

REACTIONS (2)
  - Renal disorder [Not Recovered/Not Resolved]
  - Renal impairment [None]
